FAERS Safety Report 10447907 (Version 3)
Quarter: 2014Q4

REPORT INFORMATION
  Report Type: Spontaneous
  Country: BR (occurrence: BR)
  Receive Date: 20140911
  Receipt Date: 20141020
  Transmission Date: 20150528
  Serious: Yes (Hospitalization)
  Sender: FDA-Public Use
  Company Number: BR-PFIZER INC-2014009587

PATIENT
  Age: 63 Year
  Sex: Male

DRUGS (2)
  1. SUTENT [Suspect]
     Active Substance: SUNITINIB MALATE
     Indication: GASTROINTESTINAL STROMAL CANCER
     Dosage: 37.5 MG, CYCLE (4X2)
     Route: 048
     Dates: start: 20130504
  2. SUTENT [Suspect]
     Active Substance: SUNITINIB MALATE
     Dosage: 50 MG, CYCLIC (4 PER 2)
     Route: 048
     Dates: end: 201406

REACTIONS (4)
  - Gastrointestinal stromal tumour [Unknown]
  - Post procedural complication [Unknown]
  - Disease progression [Unknown]
  - Infection [Unknown]
